FAERS Safety Report 6861106-0 (Version None)
Quarter: 2010Q3

REPORT INFORMATION
  Report Type: 
  Country: None (occurrence: None)
  Receive Date: 20100720
  Receipt Date: 20100707
  Transmission Date: 20110219
  Serious: Yes (Other)
  Sender: FDA-Public Use
  Company Number: US-JNJFOC-20100705331

PATIENT
  Age: 53 Year
  Sex: Female
  Weight: 81.65 kg

DRUGS (7)
  1. MS PEPCID AC EZ CHEWS BERRIES AND CREAM [Suspect]
     Route: 048
  2. MS PEPCID AC EZ CHEWS BERRIES AND CREAM [Suspect]
     Indication: GASTROOESOPHAGEAL REFLUX DISEASE
     Route: 048
  3. AMLODIPINE [Concomitant]
     Indication: ISCHAEMIC HEART DISEASE PROPHYLAXIS
  4. METOPROLOL [Concomitant]
     Indication: CARDIAC DISORDER
  5. VYTORIN [Concomitant]
     Indication: BLOOD CHOLESTEROL INCREASED
     Dosage: 10/40MG DAILY
  6. ASPIRIN [Concomitant]
     Indication: CARDIAC DISORDER
  7. NEXIUM [Concomitant]
     Indication: GASTROOESOPHAGEAL REFLUX DISEASE

REACTIONS (2)
  - HYPERSENSITIVITY [None]
  - REACTION TO DRUG EXCIPIENTS [None]
